FAERS Safety Report 8228905-4 (Version None)
Quarter: 2012Q1

REPORT INFORMATION
  Report Type: 
  Country: None (occurrence: None)
  Receive Date: 20120322
  Receipt Date: 20120313
  Transmission Date: 20120608
  Serious: Yes (Other)
  Sender: FDA-Public Use
  Company Number: GB-JNJFOC-20120205602

PATIENT
  Age: 43 Year
  Sex: Male
  Weight: 97 kg

DRUGS (18)
  1. BISOPROLOL FUMARATE [Concomitant]
     Dosage: ONCE EVERY MORNING
     Route: 065
  2. ISOSORBIDE MONONITRATE [Concomitant]
     Route: 065
  3. ACETAMINOPHEN [Concomitant]
     Dosage: AS AND WHEN NECESSARY
     Route: 065
  4. FENOFIBRATE [Concomitant]
     Route: 065
  5. METFORMIN HCL [Concomitant]
     Route: 065
  6. BENDROFLUMETHIAZIDE [Concomitant]
     Route: 065
  7. EXENATIDE [Concomitant]
     Dosage: 10 MCG/DOSE
     Route: 050
  8. REMICADE [Suspect]
     Route: 042
     Dates: start: 20050101, end: 20110812
  9. ISOSORBIDE MONONITRATE [Concomitant]
     Dosage: ONCE IN MORNING
     Route: 065
  10. ATORVASTATIN [Concomitant]
     Route: 065
  11. TRAMADOL HCL [Concomitant]
     Route: 065
  12. NORTRIPTYLINE HCL [Concomitant]
     Dosage: AS NECESSARY
     Route: 065
  13. OMEPRAZOLE [Concomitant]
     Route: 065
  14. ASPIRIN [Concomitant]
     Route: 065
  15. INSULIN [Concomitant]
     Dosage: 100 UNITS/ML
     Route: 065
  16. PIOGLITAZONE [Concomitant]
     Dosage: 10 MCG/DOSE
     Route: 065
  17. REMICADE [Suspect]
     Indication: PSORIASIS
     Route: 042
     Dates: start: 20120112
  18. IVABRADINE [Concomitant]
     Dosage: 10 MCG/DOSE
     Route: 065

REACTIONS (2)
  - TUBERCULOSIS [None]
  - MYCOBACTERIAL INFECTION [None]
